FAERS Safety Report 4325235-8 (Version None)
Quarter: 2004Q1

REPORT INFORMATION
  Report Type: 
  Country: None (occurrence: None)
  Receive Date: 20040324
  Receipt Date: 20031217
  Transmission Date: 20041129
  Serious: Yes (Hospitalization)
  Sender: FDA-Public Use
  Company Number: BE-JNJFOC-20031204463

PATIENT
  Age: 15 Month
  Sex: Female

DRUGS (2)
  1. PROPULSID [Suspect]
     Indication: GASTROOESOPHAGEAL REFLUX DISEASE
     Dosage: 1.4 MG, 3 IN 1 DAY, ORAL
     Route: 048
     Dates: start: 20030218, end: 20031112
  2. LOSEC (OMEPRAZOLE)UNKNOWN [Concomitant]

REACTIONS (6)
  - BRONCHITIS [None]
  - COUGH [None]
  - PYREXIA [None]
  - RASH [None]
  - VIRAL INFECTION [None]
  - VOMITING [None]
